FAERS Safety Report 7899397 (Version 3)
Quarter: 2017Q4

REPORT INFORMATION
  Report Type: Report from Study
  Country: DE (occurrence: DE)
  Receive Date: 20110414
  Receipt Date: 20171107
  Transmission Date: 20180321
  Serious: Yes (Hospitalization, Other)
  Sender: FDA-Public Use
  Company Number: DE-CELGENEUS-062-21880-11040038

PATIENT
  Age: 77 Year
  Sex: Female

DRUGS (62)
  1. CEFTRIAXON [Concomitant]
     Active Substance: CEFTRIAXONE
     Indication: INFECTION PROPHYLAXIS
     Dosage: 4 GRAM
     Route: 041
     Dates: start: 20081121, end: 20081221
  2. FENTANYL. [Concomitant]
     Active Substance: FENTANYL
     Dosage: 100 MILLIGRAM
     Route: 048
     Dates: start: 20090219, end: 20090219
  3. BISOPROLOL [Concomitant]
     Active Substance: BISOPROLOL
     Route: 048
     Dates: start: 20090129, end: 20090204
  4. MOVICOL [Concomitant]
     Active Substance: POLYETHYLENE GLYCOL 3350\POTASSIUM CHLORIDE\SODIUM BICARBONATE\SODIUM CHLORIDE
     Route: 048
     Dates: start: 20090211, end: 20090214
  5. CORTISON [Concomitant]
     Active Substance: CORTISONE ACETATE
     Route: 048
     Dates: start: 20081225, end: 20081227
  6. METAMIZOLE [Concomitant]
     Active Substance: METAMIZOLE
     Indication: TUMOUR PAIN
     Dosage: 500 MILLIGRAM
     Route: 048
     Dates: start: 20081224, end: 20081224
  7. CEFIXIM [Concomitant]
     Active Substance: CEFIXIME
     Indication: BRONCHITIS
     Dosage: 400 MILLIGRAM
     Route: 048
     Dates: start: 20081230, end: 20081231
  8. COTRIMOXAZOLE [Concomitant]
     Active Substance: SULFAMETHOXAZOLE\TRIMETHOPRIM
     Indication: INFECTION PROPHYLAXIS
     Dosage: 1920 MILLIGRAM
     Route: 048
     Dates: start: 20090130, end: 20090130
  9. POTASSIUM IODIDE. [Concomitant]
     Active Substance: POTASSIUM IODIDE
     Indication: THYROIDECTOMY
     Dosage: 100 MILLIGRAM
     Route: 048
     Dates: start: 20090129, end: 20090204
  10. DIMENHYDRINATE. [Concomitant]
     Active Substance: DIMENHYDRINATE
     Indication: NAUSEA
     Dosage: 124 MILLIGRAM
     Route: 041
     Dates: start: 20090219, end: 20090221
  11. HALOPERIDOL. [Concomitant]
     Active Substance: HALOPERIDOL
     Route: 048
     Dates: start: 20090219, end: 20090226
  12. CEFTRIAXON [Concomitant]
     Active Substance: CEFTRIAXONE
     Dosage: 2 GRAM
     Route: 041
     Dates: start: 20081222, end: 20081229
  13. FENTANYL. [Concomitant]
     Active Substance: FENTANYL
     Dosage: 100 MILLIGRAM
     Route: 048
     Dates: start: 20090131, end: 20090131
  14. ACETYLCYSTEINE. [Concomitant]
     Active Substance: ACETYLCYSTEINE
     Indication: COUGH
     Dosage: 600 MILLIGRAM
     Route: 048
     Dates: start: 20081221, end: 20081227
  15. ENOXAPARIN [Concomitant]
     Active Substance: ENOXAPARIN
     Indication: THROMBOSIS PROPHYLAXIS
     Dosage: .4 MILLILITER
     Route: 058
     Dates: start: 20081222, end: 20081227
  16. DIAZEPAM. [Concomitant]
     Active Substance: DIAZEPAM
     Dosage: 6 GRAM
     Route: 048
     Dates: start: 20081229, end: 20081231
  17. THEOPHYLLINE [Concomitant]
     Active Substance: THEOPHYLLINE ANHYDROUS
     Indication: BRONCHITIS
     Dosage: 400 MILLIGRAM
     Route: 041
     Dates: start: 20081228, end: 20081231
  18. DIMENHYDRINATE. [Concomitant]
     Active Substance: DIMENHYDRINATE
     Dosage: 62 MILLIGRAM
     Route: 041
     Dates: start: 20090223, end: 20090223
  19. DIMENHYDRINATE. [Concomitant]
     Active Substance: DIMENHYDRINATE
     Dosage: 124 MILLIGRAM
     Route: 041
     Dates: start: 20090224, end: 20090224
  20. TORASEMIDE [Concomitant]
     Active Substance: TORSEMIDE
     Indication: PROPHYLAXIS
     Dosage: 5 MILLIGRAM
     Route: 048
     Dates: start: 20090225, end: 20090227
  21. FENTANYL. [Concomitant]
     Active Substance: FENTANYL
     Indication: TUMOUR PAIN
     Dosage: 75 MILLIGRAM
     Route: 048
     Dates: start: 20081222, end: 20081222
  22. FENTANYL. [Concomitant]
     Active Substance: FENTANYL
     Dosage: 100 MILLIGRAM
     Route: 048
     Dates: start: 20090226, end: 20090226
  23. IODIDE [Concomitant]
     Active Substance: IODINE
     Dosage: 100 MILLIGRAM
     Route: 048
     Dates: start: 20090211, end: 20090227
  24. MOVICOL [Concomitant]
     Active Substance: POLYETHYLENE GLYCOL 3350\POTASSIUM CHLORIDE\SODIUM BICARBONATE\SODIUM CHLORIDE
     Indication: PROPHYLAXIS
     Dosage: 13.81 GRAM
     Route: 048
     Dates: start: 20081222, end: 20081231
  25. NADROPARIN [Concomitant]
     Active Substance: NADROPARIN
     Route: 058
     Dates: start: 20090129, end: 20090204
  26. FUROSEMIDE. [Concomitant]
     Active Substance: FUROSEMIDE
     Dosage: 40 MILLIGRAM
     Route: 041
     Dates: start: 20090224, end: 20090224
  27. TERBUTALINE [Concomitant]
     Active Substance: TERBUTALINE
     Indication: DYSPNOEA
     Route: 058
     Dates: start: 20081221, end: 20081221
  28. DIMENHYDRINATE. [Concomitant]
     Active Substance: DIMENHYDRINATE
     Dosage: 124 MILLIGRAM
     Route: 048
     Dates: start: 20090225, end: 20090225
  29. REVLIMID [Suspect]
     Active Substance: LENALIDOMIDE
     Indication: PLASMA CELL MYELOMA
     Dosage: 25 MILLIGRAM
     Route: 048
     Dates: start: 20081115, end: 20081209
  30. FENTANYL. [Concomitant]
     Active Substance: FENTANYL
     Dosage: 100 MILLIGRAM
     Route: 048
     Dates: start: 20090213, end: 20090213
  31. FENTANYL. [Concomitant]
     Active Substance: FENTANYL
     Dosage: 100 MILLIGRAM
     Route: 048
     Dates: start: 20090222, end: 20090222
  32. MOVICOL [Concomitant]
     Active Substance: POLYETHYLENE GLYCOL 3350\POTASSIUM CHLORIDE\SODIUM BICARBONATE\SODIUM CHLORIDE
     Indication: CONSTIPATION
     Dosage: .15 GRAM
     Route: 048
     Dates: start: 20090129, end: 20090204
  33. CORTISON [Concomitant]
     Active Substance: CORTISONE ACETATE
     Indication: BRONCHITIS
     Route: 048
     Dates: start: 20081222, end: 20081224
  34. HUMAN^S SANDOGLOBULIN [Concomitant]
     Indication: IMMUNODEFICIENCY
     Dosage: 10 MILLIGRAM
     Route: 041
     Dates: start: 20081230, end: 20081230
  35. COTRIMOXAZOLE [Concomitant]
     Active Substance: SULFAMETHOXAZOLE\TRIMETHOPRIM
     Dosage: 1920 MILLIGRAM
     Route: 048
     Dates: start: 20090204, end: 20090204
  36. FENTANYL. [Concomitant]
     Active Substance: FENTANYL
     Dosage: 150 MILLIGRAM
     Route: 048
     Dates: start: 20081228, end: 20081228
  37. PANTOPRAZOLE [Concomitant]
     Active Substance: PANTOPRAZOLE
     Dosage: 40 MILLIGRAM
     Route: 041
     Dates: start: 20090211, end: 20090227
  38. DIAZEPAM. [Concomitant]
     Active Substance: DIAZEPAM
     Indication: MYOTONIA
     Dosage: 4 GRAM
     Route: 048
     Dates: start: 20081228, end: 20081228
  39. COTRIMOXAZOLE [Concomitant]
     Active Substance: SULFAMETHOXAZOLE\TRIMETHOPRIM
     Route: 048
     Dates: start: 20090213, end: 20090216
  40. REVLIMID [Suspect]
     Active Substance: LENALIDOMIDE
     Dosage: 10 MILLIGRAM
     Route: 048
     Dates: start: 20081210, end: 20090202
  41. FENTANYL. [Concomitant]
     Active Substance: FENTANYL
     Dosage: 100 MILLIGRAM
     Route: 048
     Dates: start: 20090202, end: 20090202
  42. FENTANYL. [Concomitant]
     Active Substance: FENTANYL
     Dosage: 100 MILLIGRAM
     Route: 048
     Dates: start: 20090216, end: 20090216
  43. PANTOPRAZOLE [Concomitant]
     Active Substance: PANTOPRAZOLE
     Indication: PROPHYLAXIS
     Dosage: 20 MILLIGRAM
     Route: 048
     Dates: start: 20081222, end: 20081231
  44. PANTOPRAZOLE [Concomitant]
     Active Substance: PANTOPRAZOLE
     Dosage: 80 MILLIGRAM
     Route: 048
     Dates: start: 20090129, end: 20090204
  45. TETRAZEPAM [Concomitant]
     Active Substance: TETRAZEPAM
     Indication: TUMOUR PAIN
     Dosage: 50 GRAM
     Route: 048
     Dates: start: 20081221, end: 20081222
  46. REPROTEROL [Concomitant]
     Active Substance: REPROTEROL HYDROCHLORIDE
     Indication: BRONCHITIS
     Dosage: 400 MILLIGRAM
     Route: 041
     Dates: start: 20081223, end: 20081227
  47. FUROSEMIDE. [Concomitant]
     Active Substance: FUROSEMIDE
     Indication: PROPHYLAXIS
     Dosage: 20 MILLIGRAM
     Route: 048
     Dates: start: 20081224, end: 20081224
  48. COTRIMOXAZOLE [Concomitant]
     Active Substance: SULFAMETHOXAZOLE\TRIMETHOPRIM
     Route: 048
     Dates: start: 20090218, end: 20090227
  49. METOCLOPRAMIDE. [Concomitant]
     Active Substance: METOCLOPRAMIDE
     Indication: NAUSEA
     Route: 048
     Dates: start: 20090201, end: 20090204
  50. LENOGRASTIM [Concomitant]
     Active Substance: LENOGRASTIM
     Indication: NEUTROPENIA
     Dosage: 263 MILLIGRAM
     Route: 058
     Dates: start: 20090218, end: 20090219
  51. BISOPROLOL [Concomitant]
     Active Substance: BISOPROLOL
     Route: 048
     Dates: start: 20090211, end: 20090212
  52. NADROPARIN [Concomitant]
     Active Substance: NADROPARIN
     Indication: THROMBOSIS PROPHYLAXIS
     Dosage: .3 MILLILITER
     Route: 058
     Dates: start: 20081228, end: 20081231
  53. PREDNISOLONE. [Concomitant]
     Active Substance: PREDNISOLONE
     Indication: BRONCHITIS
     Route: 048
     Dates: start: 20081228, end: 20081229
  54. COTRIMOXAZOLE [Concomitant]
     Active Substance: SULFAMETHOXAZOLE\TRIMETHOPRIM
     Dosage: 1920 MILLIGRAM
     Route: 048
     Dates: start: 20090202, end: 20090202
  55. SODIUM PICOSULFATE [Concomitant]
     Active Substance: SODIUM PICOSULFATE
     Indication: CONSTIPATION
     Route: 048
     Dates: start: 20090129, end: 20090204
  56. HALOPERIDOL. [Concomitant]
     Active Substance: HALOPERIDOL
     Indication: NAUSEA
     Route: 048
     Dates: start: 20090218, end: 20090218
  57. FENTANYL. [Concomitant]
     Active Substance: FENTANYL
     Dosage: 150 MILLIGRAM
     Route: 048
     Dates: start: 20081231, end: 20081231
  58. BISOPROLOL [Concomitant]
     Active Substance: BISOPROLOL
     Indication: HYPERTENSION
     Route: 048
     Dates: start: 20081221, end: 20081231
  59. IODIDE [Concomitant]
     Active Substance: IODINE
     Indication: THYROIDECTOMY
     Dosage: 500 MILLIGRAM
     Route: 048
     Dates: start: 20081222, end: 20081231
  60. TETRAZEPAM [Concomitant]
     Active Substance: TETRAZEPAM
     Dosage: 50 GRAM
     Route: 048
     Dates: start: 20081224, end: 20081231
  61. NADROPARIN [Concomitant]
     Active Substance: NADROPARIN
     Route: 058
     Dates: start: 20090223, end: 20090226
  62. PREDNISOLONE. [Concomitant]
     Active Substance: PREDNISOLONE
     Route: 048
     Dates: start: 20081230, end: 20081231

REACTIONS (8)
  - General physical health deterioration [Recovering/Resolving]
  - Pancytopenia [Recovering/Resolving]
  - Mastoiditis [Recovering/Resolving]
  - Hypokalaemia [Recovered/Resolved]
  - Bronchitis [Recovering/Resolving]
  - Bronchitis [Recovered/Resolved]
  - Sepsis [Recovered/Resolved]
  - Dyspnoea [Recovering/Resolving]

NARRATIVE: CASE EVENT DATE: 20081221
